FAERS Safety Report 14412718 (Version 4)
Quarter: 2021Q1

REPORT INFORMATION
  Report Type: Spontaneous
  Country: US (occurrence: US)
  Receive Date: 20180119
  Receipt Date: 20210105
  Transmission Date: 20210419
  Serious: Yes (Other)
  Sender: FDA-Public Use
  Company Number: US-ASTRAZENECA-2018SE07973

PATIENT
  Age: 55 Year
  Sex: Female

DRUGS (3)
  1. FASLODEX [Suspect]
     Active Substance: FULVESTRANT
     Indication: BREAST CANCER METASTATIC
     Route: 030
     Dates: start: 20170425, end: 201801
  2. LYNPARZA [Suspect]
     Active Substance: OLAPARIB
     Indication: BREAST CANCER METASTATIC
     Route: 048
  3. XGEVA [Concomitant]
     Active Substance: DENOSUMAB
     Indication: BONE DISORDER
     Dates: start: 201607

REACTIONS (3)
  - Muscular weakness [Not Recovered/Not Resolved]
  - Acquired gene mutation [Unknown]
  - Neutropenia [Unknown]

NARRATIVE: CASE EVENT DATE: 201710
